FAERS Safety Report 4493987-2 (Version None)
Quarter: 2004Q4

REPORT INFORMATION
  Report Type: 
  Country: None (occurrence: None)
  Receive Date: 20041104
  Receipt Date: 20041104
  Transmission Date: 20050328
  Serious: Yes (Hospitalization)
  Sender: FDA-Public Use
  Company Number: None

PATIENT
  Age: 49 Year
  Sex: Female
  Weight: 54.8852 kg

DRUGS (1)
  1. VISIPAQUE [Suspect]
     Indication: ARTERIOGRAM CORONARY
     Dosage: 50 ML  ONCE  INTRA-ARTE
     Route: 013
     Dates: start: 20041102, end: 20041102

REACTIONS (5)
  - BRADYCARDIA [None]
  - CONTRAST MEDIA REACTION [None]
  - HYPOTENSION [None]
  - NAUSEA [None]
  - RASH [None]
